FAERS Safety Report 4647783-3 (Version None)
Quarter: 2005Q2

REPORT INFORMATION
  Report Type: 
  Country: None (occurrence: None)
  Receive Date: 20050427
  Receipt Date: 20050427
  Transmission Date: 20051028
  Serious: Yes (Hospitalization)
  Sender: FDA-Public Use
  Company Number: None

PATIENT
  Age: 62 Year
  Sex: Male

DRUGS (2)
  1. INTEGRILIN [Suspect]
     Indication: STENT PLACEMENT
     Dates: start: 20050319, end: 20050319
  2. PLAVIX [Suspect]
     Dates: start: 20050319, end: 20050319

REACTIONS (1)
  - PLATELET COUNT DECREASED [None]
